FAERS Safety Report 7213355-X (Version None)
Quarter: 2011Q1

REPORT INFORMATION
  Report Type: 
  Country: None (occurrence: None)
  Receive Date: 20110106
  Receipt Date: 20110103
  Transmission Date: 20110831
  Serious: Yes (Hospitalization)
  Sender: FDA-Public Use
  Company Number: DE-GILEAD-E2B_00000940

PATIENT
  Sex: Female
  Weight: 52 kg

DRUGS (6)
  1. AMBRISENTAN [Suspect]
     Indication: PULMONARY ARTERIAL HYPERTENSION
     Route: 048
     Dates: start: 20090901
  2. AMBRISENTAN [Suspect]
     Route: 048
     Dates: start: 20090101
  3. PENTOXIFYLLINE [Concomitant]
     Route: 065
  4. RAMIPRIL [Concomitant]
     Route: 065
  5. PANTOZOL [Concomitant]
     Route: 065
  6. AMBRISENTAN [Suspect]

REACTIONS (1)
  - THROMBOCYTOPENIA [None]
